FAERS Safety Report 4432312-X (Version None)
Quarter: 2004Q3

REPORT INFORMATION
  Report Type: 
  Country: None (occurrence: None)
  Receive Date: 20040820
  Receipt Date: 20040811
  Transmission Date: 20050211
  Serious: Yes (Other)
  Sender: FDA-Public Use
  Company Number: 206155

PATIENT
  Age: 9 Year
  Sex: Female

DRUGS (1)
  1. XOLAIR [Suspect]
     Indication: ASTHMA
     Dosage: 300 MG, Q2W, SUBCUTANEOUS
     Route: 058

REACTIONS (3)
  - FATIGUE [None]
  - PYREXIA [None]
  - RENAL FAILURE ACUTE [None]
